FAERS Safety Report 11856528 (Version 1)
Quarter: 2015Q4

REPORT INFORMATION
  Report Type: Spontaneous
  Country: US (occurrence: US)
  Receive Date: 20151221
  Receipt Date: 20151221
  Transmission Date: 20160305
  Serious: No
  Sender: FDA-Public Use
  Company Number: US-AVANIR PHARMACEUTICALS, INC.-2015NUEUSA00548

PATIENT

DRUGS (2)
  1. NUEDEXTA [Suspect]
     Active Substance: DEXTROMETHORPHAN HYDROBROMIDE\QUINIDINE SULFATE
     Indication: DEMENTIA ALZHEIMER^S TYPE
     Dosage: 1 CAP, QD
     Route: 048
     Dates: start: 20150616, end: 20150620
  2. BUSPAR [Suspect]
     Active Substance: BUSPIRONE HYDROCHLORIDE
     Indication: PRODUCT USED FOR UNKNOWN INDICATION
     Dosage: UNK
     Dates: end: 20150616

REACTIONS (4)
  - Off label use [Unknown]
  - Pain [Recovered/Resolved]
  - Screaming [Recovered/Resolved]
  - Aggression [Recovered/Resolved]

NARRATIVE: CASE EVENT DATE: 20150620
